FAERS Safety Report 5648772-2 (Version None)
Quarter: 2008Q1

REPORT INFORMATION
  Report Type: 
  Country: None (occurrence: None)
  Receive Date: 20080304
  Receipt Date: 20050826
  Transmission Date: 20080703
  Serious: Yes (Other)
  Sender: FDA-Public Use
  Company Number: GB-ROCHE-415542

PATIENT
  Age: 61 Year
  Sex: Male
  Weight: 77.8 kg

DRUGS (8)
  1. GANCICLOVIR [Suspect]
     Route: 042
     Dates: start: 20050727, end: 20050817
  2. VALGANCICLOVIR HCL [Suspect]
     Route: 048
     Dates: start: 20050818
  3. NEORAL [Concomitant]
     Route: 048
     Dates: start: 20050408
  4. DOXAZOSIN MESYLATE [Concomitant]
     Route: 048
     Dates: start: 20050414
  5. OMEPRAZOLE [Concomitant]
     Route: 048
     Dates: start: 20050407
  6. FLUOXETINE [Concomitant]
     Route: 048
     Dates: start: 20050407
  7. ALLOPURINOL [Concomitant]
     Route: 048
     Dates: start: 20050407
  8. SODIUM BICARBONATE [Concomitant]
     Route: 048
     Dates: start: 20050407

REACTIONS (1)
  - RAYNAUD'S PHENOMENON [None]
